FAERS Safety Report 23030479 (Version 1)
Quarter: 2023Q4

REPORT INFORMATION
  Report Type: Other
  Country: JP (occurrence: None)
  Receive Date: 20231005
  Receipt Date: 20231005
  Transmission Date: 20240109
  Serious: Yes (Other)
  Sender: FDA-Public Use
  Company Number: JP-ROCHE-3369771

PATIENT

DRUGS (2)
  1. TRASTUZUMAB [Suspect]
     Active Substance: TRASTUZUMAB
     Indication: Biliary cancer metastatic
     Dosage: FOLLOWED BY 6 MG/KG
     Route: 041
  2. TUCATINIB [Suspect]
     Active Substance: TUCATINIB
     Indication: Biliary cancer metastatic
     Route: 048

REACTIONS (36)
  - Respiratory failure [Unknown]
  - Interstitial lung disease [Unknown]
  - Hypertension [Unknown]
  - Hepatotoxicity [Unknown]
  - Hepatic infection [Unknown]
  - Hepatic encephalopathy [Unknown]
  - Gastritis haemorrhagic [Unknown]
  - Blood bilirubin increased [Unknown]
  - Amylase increased [Unknown]
  - Haemobilia [Unknown]
  - Biliary tract infection [Unknown]
  - Acute kidney injury [Unknown]
  - Diarrhoea [Unknown]
  - Cholangitis [Unknown]
  - Blood creatinine increased [Unknown]
  - Hepatic function abnormal [Unknown]
  - Liver disorder [Unknown]
  - Alanine aminotransferase increased [Unknown]
  - COVID-19 [Unknown]
  - Nausea [Unknown]
  - Decreased appetite [Unknown]
  - Anaemia [Unknown]
  - Aspartate aminotransferase increased [Unknown]
  - Fatigue [Unknown]
  - Hyponatraemia [Unknown]
  - Chills [Unknown]
  - Pyrexia [Unknown]
  - Infusion related reaction [Unknown]
  - Malaise [Unknown]
  - Vomiting [Unknown]
  - Stomatitis [Unknown]
  - Abdominal pain upper [Unknown]
  - Abdominal pain [Unknown]
  - Dry skin [Unknown]
  - Dizziness [Unknown]
  - Back pain [Unknown]
